FAERS Safety Report 9727493 (Version 3)
Quarter: 2014Q1

REPORT INFORMATION
  Report Type: Spontaneous
  Country: DK (occurrence: FR)
  Receive Date: 20131203
  Receipt Date: 20140131
  Transmission Date: 20141002
  Serious: Yes (Life-Threatening)
  Sender: FDA-Public Use
  Company Number: FR-FRI-1000051816

PATIENT
  Age: 49 Year
  Sex: Female

DRUGS (13)
  1. ESCITALOPRAM [Suspect]
     Indication: DEPRESSION
     Dosage: 1 DF
     Route: 048
     Dates: start: 20130927, end: 20131017
  2. FLUDEX [Suspect]
     Indication: HYPERTENSION
     Dosage: 1 DF
     Route: 048
     Dates: end: 20131017
  3. XEROQUEL [Concomitant]
     Dosage: 1 DF
     Route: 048
  4. ALPRAZOLAM [Concomitant]
     Dosage: 1 DF
     Route: 048
  5. ZOLPIDEM [Concomitant]
     Dosage: 5 MG
     Route: 048
  6. VASTEN [Concomitant]
     Dosage: 1 DR
     Route: 048
  7. DOLIPRANE [Concomitant]
     Dosage: 6 DF
     Route: 048
  8. DOMPERIDONE [Concomitant]
     Dosage: 3 DF
     Route: 048
  9. TARKA [Concomitant]
     Dosage: 180 MG /2 MG DAILY
     Route: 048
  10. INEXIUM [Concomitant]
     Dosage: 2 DF
     Route: 048
  11. LEVOTHYROX [Concomitant]
     Dosage: 1 DF
     Route: 048
  12. OSTRAM VITAMINE D3 [Concomitant]
     Route: 048
  13. TRANSIPEG [Concomitant]
     Dosage: 2 DF
     Route: 048

REACTIONS (4)
  - Hyponatraemia [Recovered/Resolved]
  - Hypokalaemia [Recovered/Resolved]
  - Coma [Recovered/Resolved]
  - Convulsion [Recovered/Resolved]
